FAERS Safety Report 8262099-4 (Version None)
Quarter: 2012Q2

REPORT INFORMATION
  Report Type: 
  Country: None (occurrence: None)
  Receive Date: 20120405
  Receipt Date: 20120329
  Transmission Date: 20120825
  Serious: Yes (Other)
  Sender: FDA-Public Use
  Company Number: PHFR2012GB000485

PATIENT
  Sex: Male

DRUGS (2)
  1. CLOZARIL [Suspect]
     Indication: SCHIZOPHRENIA
     Dosage: 625 MG, DAILY
     Route: 048
     Dates: start: 19910815
  2. CLOZARIL [Suspect]
     Dosage: UNK UKN, FOUR DAYS WORTH OF TABLET

REACTIONS (1)
  - INCORRECT DOSE ADMINISTERED [None]
